FAERS Safety Report 12649302 (Version 1)
Quarter: 2016Q3

REPORT INFORMATION
  Report Type: Other
  Country: US (occurrence: US)
  Receive Date: 20160812
  Receipt Date: 20160812
  Transmission Date: 20161109
  Serious: No
  Sender: FDA-Public Use
  Company Number: US-DEPOMED, INC.-US-2016DEP009181

PATIENT

DRUGS (28)
  1. GABAPENTIN. [Concomitant]
     Active Substance: GABAPENTIN
     Indication: NEURALGIA
  2. COLACE [Concomitant]
     Active Substance: DOCUSATE SODIUM
     Dosage: DF
  3. TAMOXIFEN [Concomitant]
     Active Substance: TAMOXIFEN
  4. GABAPENTIN. [Concomitant]
     Active Substance: GABAPENTIN
     Indication: BACK PAIN
  5. HYDROCHLOROTHIAZIDE. [Concomitant]
     Active Substance: HYDROCHLOROTHIAZIDE
     Dosage: DF
  6. TRICOR [Concomitant]
     Active Substance: FENOFIBRATE
  7. FLEXERIL [Concomitant]
     Active Substance: CYCLOBENZAPRINE HYDROCHLORIDE
     Indication: BACK PAIN
  8. CINNAMON. [Concomitant]
     Active Substance: CINNAMON
  9. CRANBERRY. [Concomitant]
     Active Substance: CRANBERRY
  10. OXYCONTIN [Concomitant]
     Active Substance: OXYCODONE HYDROCHLORIDE
     Indication: BACK PAIN
     Dosage: 20 MG, FREQUENCY UNKNOWN
  11. REMERON [Concomitant]
     Active Substance: MIRTAZAPINE
  12. GLIPIZIDE. [Concomitant]
     Active Substance: GLIPIZIDE
  13. COZAAR [Concomitant]
     Active Substance: LOSARTAN POTASSIUM
  14. SIMVASTATIN. [Concomitant]
     Active Substance: SIMVASTATIN
     Dosage: DF
  15. VITAMIN D [Concomitant]
     Active Substance: CHOLECALCIFEROL
  16. PERCOCET [Concomitant]
     Active Substance: ACETAMINOPHEN\OXYCODONE HYDROCHLORIDE
     Indication: BACK PAIN
     Dosage: 10-325 MG
  17. MAGNESIUM [Concomitant]
     Active Substance: MAGNESIUM
  18. ZIPSOR [Suspect]
     Active Substance: DICLOFENAC POTASSIUM
     Indication: ARTHRALGIA
     Dates: start: 2013, end: 201501
  19. ZOCOR [Concomitant]
     Active Substance: SIMVASTATIN
  20. MILK THISTLE [Concomitant]
     Active Substance: MILK THISTLE
  21. METFORMIN HCL [Concomitant]
     Active Substance: METFORMIN HYDROCHLORIDE
  22. ATARAX [Concomitant]
     Active Substance: HYDROXYZINE\HYDROXYZINE HYDROCHLORIDE
  23. DICLOFENAC POTASSIUM. [Suspect]
     Active Substance: DICLOFENAC POTASSIUM
     Indication: ARTHRALGIA
     Dates: start: 2005, end: 201501
  24. KEFLEX [Concomitant]
     Active Substance: CEPHALEXIN
  25. XANAX [Concomitant]
     Active Substance: ALPRAZOLAM
  26. OMEPRAZOLE MAGNESIUM. [Concomitant]
     Active Substance: OMEPRAZOLE MAGNESIUM
  27. ASPIRIN. [Concomitant]
     Active Substance: ASPIRIN
  28. MICROZIDE [Concomitant]
     Active Substance: HYDROCHLOROTHIAZIDE

REACTIONS (10)
  - Chronic kidney disease [Not Recovered/Not Resolved]
  - Depression [Unknown]
  - Hypertension [Unknown]
  - Interstitial granulomatous dermatitis [Not Recovered/Not Resolved]
  - Skin discolouration [Not Recovered/Not Resolved]
  - Back disorder [Unknown]
  - Cystitis [Unknown]
  - Anxiety [Unknown]
  - Breast disorder female [Unknown]
  - Blood cholesterol increased [Unknown]

NARRATIVE: CASE EVENT DATE: 20140609
